FAERS Safety Report 9233633 (Version 1)
Quarter: 2013Q2

REPORT INFORMATION
  Report Type: Spontaneous
  Country: US (occurrence: US)
  Receive Date: 20130416
  Receipt Date: 20130416
  Transmission Date: 20140414
  Serious: No
  Sender: FDA-Public Use
  Company Number: US-BANPHARM-20130638

PATIENT
  Age: 33 Year
  Sex: Female
  Weight: 89.36 kg

DRUGS (3)
  1. ALEVE LIQUID GELS 220MG [Suspect]
     Indication: HEADACHE
     Dosage: 9 DF, QD,
     Route: 048
     Dates: start: 20130130
  2. BAYER? CHEWABLE 81MG ASPIRIN CHERRY [Concomitant]
  3. POTASSIUM SUPPLEMENT [Concomitant]

REACTIONS (5)
  - Hyperhidrosis [Not Recovered/Not Resolved]
  - Hot flush [Not Recovered/Not Resolved]
  - Palpitations [Not Recovered/Not Resolved]
  - Nausea [Not Recovered/Not Resolved]
  - Incorrect dose administered [Unknown]
